FAERS Safety Report 9540049 (Version 2)
Quarter: 2013Q3

REPORT INFORMATION
  Report Type: Report from Study
  Country: UG (occurrence: UG)
  Receive Date: 20130920
  Receipt Date: 20130920
  Transmission Date: 20140515
  Serious: Yes (Death)
  Sender: FDA-Public Use
  Company Number: UG-009507513-1205USA01954

PATIENT
  Age: 31 Year
  Sex: 0

DRUGS (3)
  1. RALTEGRAVIR POTASSIUM [Suspect]
     Indication: HIV INFECTION
     Route: 048
     Dates: start: 20101216, end: 20111231
  2. LOPINAVIR (+) RITONAVIR [Suspect]
     Indication: HIV INFECTION
     Dosage: UNK
     Dates: start: 20101216, end: 20111231
  3. SEPTRIN [Concomitant]
     Indication: HIV INFECTION
     Dosage: UNK
     Dates: start: 20101216, end: 20111231

REACTIONS (1)
  - Psychotic disorder [Fatal]
